FAERS Safety Report 6981345-8 (Version None)
Quarter: 2010Q3

REPORT INFORMATION
  Report Type: 
  Country: None (occurrence: None)
  Receive Date: 20100909
  Receipt Date: 20100823
  Transmission Date: 20110219
  Serious: Yes (Death)
  Sender: FDA-Public Use
  Company Number: 20100423

PATIENT
  Age: 55 Year
  Sex: Male

DRUGS (1)
  1. METHYLENE BLUE INJECTION, USP(0310-10) 10 MG/ML [Suspect]
     Indication: PRODUCT USED FOR UNKNOWN INDICATION
     Dosage: 240 MG INTRAVENOUS BOLUS
     Route: 040

REACTIONS (9)
  - BRAIN STEM SYNDROME [None]
  - CARDIAC PROCEDURE COMPLICATION [None]
  - DEVICE MALFUNCTION [None]
  - METABOLIC ACIDOSIS [None]
  - METHAEMOGLOBINAEMIA [None]
  - NO THERAPEUTIC RESPONSE [None]
  - SUBARACHNOID HAEMORRHAGE [None]
  - SUBDURAL HAEMATOMA [None]
  - VENOUS OXYGEN SATURATION DECREASED [None]
